FAERS Safety Report 7273506-8 (Version None)
Quarter: 2011Q1

REPORT INFORMATION
  Report Type: 
  Country: None (occurrence: None)
  Receive Date: 20110203
  Receipt Date: 20110119
  Transmission Date: 20110831
  Serious: Yes (Other)
  Sender: FDA-Public Use
  Company Number: US-PFIZER INC-2010040181

PATIENT
  Sex: Female
  Weight: 59 kg

DRUGS (4)
  1. LYRICA [Suspect]
     Indication: FIBROMYALGIA
     Dosage: 75 MG, 2X/DAY
     Route: 048
     Dates: start: 20100319, end: 20100319
  2. LYRICA [Suspect]
     Indication: PAIN
  3. LYRICA [Suspect]
     Indication: MUSCLE SPASMS
  4. ENBREL [Suspect]
     Indication: RHEUMATOID ARTHRITIS
     Dosage: 25 MG, SINGLE
     Route: 058
     Dates: end: 20091201

REACTIONS (13)
  - DYSARTHRIA [None]
  - MUSCLE SPASMS [None]
  - FATIGUE [None]
  - DECREASED IMMUNE RESPONSIVENESS [None]
  - VERTIGO [None]
  - DISTURBANCE IN ATTENTION [None]
  - VISION BLURRED [None]
  - BACK PAIN [None]
  - DIZZINESS [None]
  - MOTOR DYSFUNCTION [None]
  - GAIT DISTURBANCE [None]
  - SURGERY [None]
  - FIBROMYALGIA [None]
